FAERS Safety Report 5043028-3 (Version None)
Quarter: 2006Q2

REPORT INFORMATION
  Report Type: 
  Country: None (occurrence: None)
  Receive Date: 20060628
  Receipt Date: 20060619
  Transmission Date: 20061013
  Serious: Yes (Other)
  Sender: FDA-Public Use
  Company Number: 29332

PATIENT
  Age: 77 Year
  Sex: Male

DRUGS (5)
  1. FLECAINIDE ACETATE [Suspect]
     Indication: ARRHYTHMIA SUPRAVENTRICULAR
     Dosage: 300 MG (100 MG, 3 IN 1 DAY(S))
     Route: 048
     Dates: start: 19890101
  2. FLECAINIDE ACETATE [Suspect]
     Indication: ATRIAL FIBRILLATION
     Dosage: 300 MG (100 MG, 3 IN 1 DAY(S))
     Route: 048
     Dates: start: 19890101
  3. THYROXINE [Concomitant]
  4. ZOCOR [Concomitant]
  5. ATENOLOL [Concomitant]

REACTIONS (1)
  - PULMONARY FIBROSIS [None]
